FAERS Safety Report 10088517 (Version 1)
Quarter: 2014Q2

REPORT INFORMATION
  Report Type: Spontaneous
  Country: US (occurrence: US)
  Receive Date: 20140421
  Receipt Date: 20140421
  Transmission Date: 20141212
  Serious: No
  Sender: FDA-Public Use
  Company Number: US-BIOGENIDEC-2014BI032045

PATIENT
  Age: 53 Year
  Sex: Female

DRUGS (8)
  1. TECFIDERA [Suspect]
     Indication: MULTIPLE SCLEROSIS
     Route: 048
     Dates: start: 20140324
  2. TECFIDERA [Suspect]
     Indication: MULTIPLE SCLEROSIS
     Route: 048
     Dates: start: 201403, end: 20140330
  3. TECFIDERA [Suspect]
     Indication: MULTIPLE SCLEROSIS
     Dates: start: 20140331
  4. XANAX [Concomitant]
  5. CA+MG+ZINC [Concomitant]
  6. FISH OIL [Concomitant]
  7. VITAMIN C [Concomitant]
  8. PREVACID [Concomitant]

REACTIONS (3)
  - Memory impairment [Recovered/Resolved]
  - Underdose [Recovered/Resolved]
  - Diarrhoea [Unknown]
